FAERS Safety Report 9961529 (Version 2)
Quarter: 2014Q1

REPORT INFORMATION
  Report Type: Spontaneous
  Country: US (occurrence: US)
  Receive Date: 20140305
  Receipt Date: 20140314
  Transmission Date: 20141002
  Serious: Yes (Death)
  Sender: FDA-Public Use
  Company Number: US-ACTELION-A-US2014-95451

PATIENT
  Age: 81 Year
  Sex: Female

DRUGS (6)
  1. TRACLEER [Suspect]
     Indication: PULMONARY ARTERIAL HYPERTENSION
     Dosage: 125 MG, BID
     Route: 048
     Dates: start: 20091123, end: 20140210
  2. MYCOPHENOLATE MOFETIL [Concomitant]
  3. CATAPRESS [Concomitant]
  4. NORVASC [Concomitant]
  5. FOSINOPRIL [Concomitant]
  6. PANTOPRAZOLE [Concomitant]

REACTIONS (1)
  - Systemic sclerosis pulmonary [Fatal]
